FAERS Safety Report 6283885-6 (Version None)
Quarter: 2009Q3

REPORT INFORMATION
  Report Type: 
  Country: None (occurrence: None)
  Receive Date: 20090723
  Receipt Date: 20090723
  Transmission Date: 20100115
  Serious: No
  Sender: FDA-Public Use
  Company Number: None

PATIENT
  Age: 85 Year
  Sex: Female

DRUGS (1)
  1. LEVOFLOXACIN [Suspect]
     Dosage: 500MG QD
     Dates: start: 20071105, end: 20071111

REACTIONS (11)
  - AUTOIMMUNE HEPATITIS [None]
  - CHROMATURIA [None]
  - EOSINOPHIL PERCENTAGE INCREASED [None]
  - FATIGUE [None]
  - HAEMOGLOBIN DECREASED [None]
  - HEPATITIS C ANTIBODY POSITIVE [None]
  - HYPERGAMMAGLOBULINAEMIA [None]
  - INTERNATIONAL NORMALISED RATIO INCREASED [None]
  - JAUNDICE [None]
  - LIVER INJURY [None]
  - LYMPHOCYTE PERCENTAGE DECREASED [None]
